FAERS Safety Report 6084032-6 (Version None)
Quarter: 2009Q1

REPORT INFORMATION
  Report Type: 
  Country: None (occurrence: None)
  Receive Date: 20090219
  Receipt Date: 20090212
  Transmission Date: 20090719
  Serious: Yes (Other)
  Sender: FDA-Public Use
  Company Number: AT-ASTRAZENECA-2009PK00543

PATIENT
  Age: 731 Month
  Sex: Male

DRUGS (8)
  1. CRESTOR [Suspect]
     Route: 048
     Dates: start: 20081022
  2. OMEC [Concomitant]
     Route: 048
  3. HYPREN [Concomitant]
     Route: 048
  4. UROSIN [Concomitant]
     Route: 048
  5. EUTHYROX [Concomitant]
     Route: 048
  6. TIZANIDINE HCL [Concomitant]
     Route: 048
  7. ASPIRIN [Concomitant]
     Route: 048
  8. DICLOBENE [Concomitant]
     Route: 048

REACTIONS (1)
  - PARAESTHESIA [None]
